FAERS Safety Report 4430312-7 (Version None)
Quarter: 2004Q3

REPORT INFORMATION
  Report Type: 
  Country: None (occurrence: None)
  Receive Date: 20040809
  Receipt Date: 20040723
  Transmission Date: 20050211
  Serious: Yes (Hospitalization)
  Sender: FDA-Public Use
  Company Number: 601425

PATIENT
  Age: 7 Month
  Sex: Male
  Weight: 7.4 kg

DRUGS (1)
  1. RECOMBINATE [Suspect]
     Indication: FACTOR VIII DEFICIENCY
     Dosage: QD; INTRAVENOUS
     Route: 042
     Dates: start: 20031231, end: 20040109

REACTIONS (3)
  - ANAPHYLACTIC REACTION [None]
  - INFUSION RELATED REACTION [None]
  - SKIN DISCOLOURATION [None]
